FAERS Safety Report 8446183 (Version 10)
Quarter: 2014Q4

REPORT INFORMATION
  Report Type: Spontaneous
  Country: PT (occurrence: PT)
  Receive Date: 20120307
  Receipt Date: 20141110
  Transmission Date: 20150529
  Serious: Yes (Hospitalization, Other)
  Sender: FDA-Public Use
  Company Number: PT-PFIZER INC-2012056615

PATIENT
  Age: 20 Year
  Sex: Male
  Weight: 70 kg

DRUGS (6)
  1. REFACTO AF [Suspect]
     Active Substance: ANTIHEMOPHILIC FACTOR, HUMAN RECOMBINANT RESIDUES 743-1636 DELETED
     Dosage: 30 IU/KG, UNK
     Route: 042
     Dates: start: 20110314, end: 20110318
  2. REFACTO AF [Suspect]
     Active Substance: ANTIHEMOPHILIC FACTOR, HUMAN RECOMBINANT RESIDUES 743-1636 DELETED
     Dosage: 30 IU/KG, UNK
     Route: 042
     Dates: start: 20120203, end: 20120205
  3. REFACTO AF [Suspect]
     Active Substance: ANTIHEMOPHILIC FACTOR, HUMAN RECOMBINANT RESIDUES 743-1636 DELETED
     Dosage: 30 IU/KG, SINGLE
     Route: 042
     Dates: start: 20120215, end: 20120216
  4. REFACTO AF [Suspect]
     Active Substance: ANTIHEMOPHILIC FACTOR, HUMAN RECOMBINANT RESIDUES 743-1636 DELETED
     Indication: HAEMORRHAGE PROPHYLAXIS
     Dosage: 30 IU/KG, UNK
     Route: 042
     Dates: start: 20101005, end: 20101110
  5. REFACTO AF [Suspect]
     Active Substance: ANTIHEMOPHILIC FACTOR, HUMAN RECOMBINANT RESIDUES 743-1636 DELETED
     Dosage: 30 IU/KG, UNK
     Route: 042
     Dates: start: 20120328, end: 20120328
  6. REFACTO AF [Suspect]
     Active Substance: ANTIHEMOPHILIC FACTOR, HUMAN RECOMBINANT RESIDUES 743-1636 DELETED
     Dosage: 30 IU/KG, UNK
     Route: 042
     Dates: start: 20101005, end: 20101110

REACTIONS (4)
  - Haematoma [Recovered/Resolved]
  - Ecchymosis [Recovered/Resolved]
  - Anti factor VIII antibody positive [Recovered/Resolved]
  - Post procedural haemorrhage [Recovered/Resolved]

NARRATIVE: CASE EVENT DATE: 201202
